FAERS Safety Report 13469557 (Version 1)
Quarter: 2017Q2

REPORT INFORMATION
  Report Type: Other
  Country: GB (occurrence: BE)
  Receive Date: 20170421
  Receipt Date: 20170421
  Transmission Date: 20170830
  Serious: Yes (Hospitalization, Other)
  Sender: FDA-Public Use
  Company Number: BE-INTERNATIONAL MEDICATION SYSTEMS, LIMITED-1065695

PATIENT
  Age: 53 Year
  Sex: Female

DRUGS (2)
  1. CLONIDINE 2.4 MG/ML, DOSE RANGED BETWEEN 630 AND 780 MCG/DAY [Concomitant]
     Active Substance: CLONIDINE
     Route: 037
  2. MORPHINE 10 MG/ML, DOSE RANGED BETWEEN 2.2 AND 3.6 MG/DAY [Suspect]
     Active Substance: MORPHINE SULFATE
     Indication: PHANTOM PAIN
     Route: 037

REACTIONS (3)
  - Catheter site granuloma [Recovering/Resolving]
  - Urinary incontinence [Unknown]
  - Hypoaesthesia [Unknown]
